FAERS Safety Report 5506379-1 (Version None)
Quarter: 2007Q4

REPORT INFORMATION
  Report Type: 
  Country: None (occurrence: None)
  Receive Date: 20071101
  Receipt Date: 20071019
  Transmission Date: 20080405
  Serious: Yes (Other)
  Sender: FDA-Public Use
  Company Number: 2007JP004858

PATIENT
  Age: 66 Year
  Sex: Female

DRUGS (8)
  1. PROGRAF [Suspect]
     Indication: RHEUMATOID ARTHRITIS
     Dosage: 1 MG, /D, ORAL; 1.5 MG, /D, ORAL
     Route: 048
     Dates: start: 20070509, end: 20070814
  2. PROGRAF [Suspect]
     Indication: RHEUMATOID ARTHRITIS
     Dosage: 1 MG, /D, ORAL; 1.5 MG, /D, ORAL
     Route: 048
     Dates: start: 20070815, end: 20070903
  3. GASTER D ORODISPERSABLE CR [Concomitant]
  4. HALCION [Concomitant]
  5. PREDONINE (PREDNISOLONE SODIUM SUCCINATE) [Concomitant]
  6. FOSAMAC (ALENDRONATE SODIUM) [Concomitant]
  7. METHOTREXATE [Concomitant]
  8. ETODOLAC [Concomitant]

REACTIONS (1)
  - ATRIOVENTRICULAR BLOCK COMPLETE [None]
